FAERS Safety Report 6168932-4 (Version None)
Quarter: 2009Q2

REPORT INFORMATION
  Report Type: 
  Country: None (occurrence: None)
  Receive Date: 20090427
  Receipt Date: 20090417
  Transmission Date: 20091009
  Serious: Yes (Other)
  Sender: FDA-Public Use
  Company Number: PHHY2009DE15619

PATIENT

DRUGS (1)
  1. RITALIN LA [Suspect]
     Dosage: 20 MG, QD
     Route: 048

REACTIONS (4)
  - ABDOMINAL PAIN [None]
  - INSOMNIA [None]
  - MUSCLE TWITCHING [None]
  - SALIVARY HYPERSECRETION [None]
